FAERS Safety Report 11234911 (Version 1)
Quarter: 2015Q3

REPORT INFORMATION
  Report Type: Spontaneous
  Country: US (occurrence: US)
  Receive Date: 20150702
  Receipt Date: 20150702
  Transmission Date: 20151125
  Serious: No
  Sender: FDA-Public Use
  Company Number: US-SHIRE-US201506792

PATIENT
  Age: 40 Year
  Sex: Female
  Weight: 69.39 kg

DRUGS (3)
  1. CEFADROXIL. [Concomitant]
     Active Substance: CEFADROXIL
     Indication: ACNE
     Dosage: 500 MG, 2X/DAY:BID
     Route: 048
  2. LIALDA [Suspect]
     Active Substance: MESALAMINE
     Dosage: 2.4 G, 2X/DAY:BID
     Route: 048
     Dates: start: 20150617
  3. LIALDA [Suspect]
     Active Substance: MESALAMINE
     Indication: COLITIS ULCERATIVE
     Dosage: 2.4 G, 1X/DAY:QD
     Route: 048
     Dates: start: 201505, end: 20150617

REACTIONS (5)
  - Arthralgia [Unknown]
  - Peripheral swelling [Not Recovered/Not Resolved]
  - Myalgia [Unknown]
  - Inappropriate schedule of drug administration [Not Recovered/Not Resolved]
  - Pain [Not Recovered/Not Resolved]

NARRATIVE: CASE EVENT DATE: 2015
